FAERS Safety Report 15469480 (Version 1)
Quarter: 2018Q4

REPORT INFORMATION
  Report Type: Spontaneous
  Country: BH (occurrence: BH)
  Receive Date: 20181005
  Receipt Date: 20181005
  Transmission Date: 20190205
  Serious: Yes (Death, Other)
  Sender: FDA-Public Use
  Company Number: BH-APOPHARMA-2018AP021783

PATIENT
  Sex: Male

DRUGS (1)
  1. FERRIPROX [Suspect]
     Active Substance: DEFERIPRONE
     Indication: PRODUCT USED FOR UNKNOWN INDICATION
     Route: 065

REACTIONS (1)
  - Agranulocytosis [Fatal]
